FAERS Safety Report 20033375 (Version 2)
Quarter: 2021Q4

REPORT INFORMATION
  Report Type: Spontaneous
  Country: JP (occurrence: JP)
  Receive Date: 20211104
  Receipt Date: 20211108
  Transmission Date: 20220304
  Serious: Yes (Other)
  Sender: FDA-Public Use
  Company Number: JP-BAXTER-2021BAX033835

PATIENT
  Age: 81 Year
  Sex: Female

DRUGS (1)
  1. SUPRANE [Suspect]
     Active Substance: DESFLURANE
     Indication: Sigmoidectomy
     Route: 055

REACTIONS (4)
  - Pneumoperitoneum [Unknown]
  - Airway peak pressure increased [Recovered/Resolved]
  - Low lung compliance [Recovered/Resolved]
  - Hypertension [Unknown]
